FAERS Safety Report 25791379 (Version 1)
Quarter: 2025Q3

REPORT INFORMATION
  Report Type: Spontaneous
  Country: US (occurrence: US)
  Receive Date: 20250911
  Receipt Date: 20250911
  Transmission Date: 20251021
  Serious: No
  Sender: BOEHRINGER INGELHEIM
  Company Number: US-Komodo Health-a23aa00000A6tk1AAB

PATIENT
  Sex: Female

DRUGS (2)
  1. MICARDIS [Suspect]
     Active Substance: TELMISARTAN
     Indication: Blood pressure measurement
  2. TELMISARTAN [Concomitant]
     Active Substance: TELMISARTAN
     Indication: Product used for unknown indication

REACTIONS (2)
  - Drug ineffective [Unknown]
  - Malaise [Unknown]
